FAERS Safety Report 6886964-5 (Version None)
Quarter: 2010Q3

REPORT INFORMATION
  Report Type: 
  Country: None (occurrence: None)
  Receive Date: 20100730
  Receipt Date: 20100720
  Transmission Date: 20110219
  Serious: Yes (Life-Threatening, Hospitalization)
  Sender: FDA-Public Use
  Company Number: CH-WYE-G06429710

PATIENT
  Age: 69 Year
  Sex: Male

DRUGS (14)
  1. EFFEXOR [Interacting]
     Indication: DEPRESSION
     Dosage: UNKNOWN START DATE, STARTED BEFORE THE HOSPITALIZATION,STOPPED ON 30-MAR-2010, 75 MG DAILY
     Route: 048
  2. TEMGESIC [Concomitant]
     Route: 048
  3. PANTOZOL [Concomitant]
     Route: 048
  4. ZYLORIC [Concomitant]
     Route: 048
  5. NORVASC [Concomitant]
     Route: 048
  6. HALDOL [Suspect]
     Dosage: CUMULATIVE DOSE OF 8 MG GIVEN WITHIN 24 HOURS BETWEEN THE 28 AND THE 29-MAR-2010 (ORAL AND I.V.)
  7. CELLCEPT [Concomitant]
     Route: 048
  8. PREDNISONE [Concomitant]
     Route: 048
  9. ACETAMINOPHEN [Concomitant]
     Route: 048
  10. NOPIL [Concomitant]
     Dosage: 80/400 MG 3 TIMES WEEKLY, STARTED DURING THE HOSPITALIZATION
     Route: 048
  11. AMPHOTERICIN B [Concomitant]
     Route: 048
  12. SEROQUEL [Suspect]
     Dosage: BETWEEN THE 28 AND 29-MAR-2010 CUMULATIVE DOSE OF 30 MG WITHIN 24 HOURS
     Route: 048
  13. REMERON [Interacting]
     Indication: DEPRESSION
     Dosage: UNKNOWN START DATE, STARTED BEFORE THE HOSPITALIZATION,STOPPED ON 28-MAR-2010, 30 MG TWICE DAILY
     Route: 048
  14. PROGRAF [Concomitant]
     Route: 048

REACTIONS (6)
  - DELIRIUM [None]
  - DRUG INTERACTION [None]
  - HYPOKINESIA [None]
  - MYOCLONUS [None]
  - NEUROLEPTIC MALIGNANT SYNDROME [None]
  - SEROTONIN SYNDROME [None]
